FAERS Safety Report 10247577 (Version 1)
Quarter: 2014Q2

REPORT INFORMATION
  Report Type: Spontaneous
  Country: GB (occurrence: None)
  Receive Date: 20140617
  Receipt Date: 20140617
  Transmission Date: 20141212
  Serious: Yes (Hospitalization, Disabling)
  Sender: FDA-Public Use
  Company Number: ABR_01701_2014

PATIENT
  Age: 66 Year
  Sex: Female
  Weight: 64 kg

DRUGS (2)
  1. ERYTHROMYCIN (ERYTHROMYCIN) [Suspect]
     Indication: INFECTED BITES
     Route: 048
     Dates: start: 20120717, end: 20120719
  2. PIRITRON [Concomitant]

REACTIONS (2)
  - Diarrhoea [None]
  - Gastroenteritis viral [None]
